FAERS Safety Report 6882091-1 (Version None)
Quarter: 2010Q3

REPORT INFORMATION
  Report Type: 
  Country: None (occurrence: None)
  Receive Date: 20100702
  Receipt Date: 20100125
  Transmission Date: 20110219
  Serious: Yes (Other)
  Sender: FDA-Public Use
  Company Number: 2010010397

PATIENT

DRUGS (1)
  1. ZOLOFT [Suspect]

REACTIONS (1)
  - HAEMORRHAGE [None]
